FAERS Safety Report 5810486-3 (Version None)
Quarter: 2008Q3

REPORT INFORMATION
  Report Type: 
  Country: None (occurrence: None)
  Receive Date: 20080709
  Receipt Date: 20080627
  Transmission Date: 20090109
  Serious: Yes (Disabling)
  Sender: FDA-Public Use
  Company Number: 2008AP001622

PATIENT
  Age: 50 Year
  Sex: Female

DRUGS (2)
  1. TERBINAFINE HCL [Suspect]
     Indication: ONYCHOMYCOSIS
     Dosage: 250 MG; QD
     Dates: start: 20080212, end: 20080523
  2. LEVOTHYROXINE SODIUM [Concomitant]

REACTIONS (2)
  - ANOSMIA [None]
  - TREATMENT FAILURE [None]
